FAERS Safety Report 4550604-0 (Version None)
Quarter: 2004Q4

REPORT INFORMATION
  Report Type: 
  Country: None (occurrence: None)
  Receive Date: 20041227
  Receipt Date: 20040922
  Transmission Date: 20050328
  Serious: No
  Sender: FDA-Public Use
  Company Number: 04P-163-0274051-00

PATIENT
  Age: 79 Year
  Sex: Female
  Weight: 72.5755 kg

DRUGS (13)
  1. HUMIRA [Suspect]
     Indication: RHEUMATOID ARTHRITIS
     Dosage: 40 MG, 1 IN 2 WK, SUBCUTANEOUS
     Route: 058
  2. FELODIPINE [Concomitant]
  3. CELECOXIB [Concomitant]
  4. FOLIC ACID [Concomitant]
  5. ULTRACET [Concomitant]
  6. GABAPENTIN [Concomitant]
  7. MULTI-VITAMINS [Concomitant]
  8. METHOTREXATE SODIUM [Concomitant]
  9. LORAZEPAM [Concomitant]
  10. TOCOPHEROL CONCENTRATE CAP [Concomitant]
  11. CALCIUM GLUCONATE [Concomitant]
  12. FISH OIL [Concomitant]
  13. GLUCOSAMINE [Concomitant]

REACTIONS (1)
  - INJECTION SITE BURNING [None]
